FAERS Safety Report 8939336 (Version 1)
Quarter: 2012Q4

REPORT INFORMATION
  Report Type: 
  Country: AR (occurrence: AR)
  Receive Date: 20121203
  Receipt Date: 20121203
  Transmission Date: 20130627
  Serious: Yes (Hospitalization, Other)
  Sender: FDA-Public Use
  Company Number: AR-NOVOPROD-365204

PATIENT
  Sex: Female
  Weight: 2.17 kg

DRUGS (3)
  1. NOVORAPID [Suspect]
     Indication: GESTATIONAL DIABETES
     Route: 064
     Dates: start: 20120316
  2. NOVORAPID [Suspect]
     Indication: GESTATIONAL DIABETES
     Route: 064
     Dates: start: 20120316
  3. METFORMINE [Concomitant]
     Dosage: 1 g, qd
     Route: 048

REACTIONS (4)
  - Jaundice neonatal [Recovered/Resolved]
  - Premature baby [Recovered/Resolved]
  - Hypoglycaemia neonatal [Recovered/Resolved]
  - Foetal exposure during pregnancy [Recovered/Resolved]
